FAERS Safety Report 24078499 (Version 1)
Quarter: 2024Q3

REPORT INFORMATION
  Report Type: Report from Study
  Country: US (occurrence: US)
  Receive Date: 20240711
  Receipt Date: 20240711
  Transmission Date: 20241017
  Serious: Yes (Death, Other)
  Sender: PFIZER
  Company Number: US-PFIZER INC-202400049257

PATIENT
  Age: 87 Year
  Sex: Male

DRUGS (12)
  1. VYNDAMAX [Suspect]
     Active Substance: TAFAMIDIS
     Dosage: 61 MG
     Dates: start: 2021
  2. LATANOPROST [Concomitant]
     Active Substance: LATANOPROST
  3. FERROUS SULFATE [Concomitant]
     Active Substance: FERROUS SULFATE
  4. BENZONATATE [Concomitant]
     Active Substance: BENZONATATE
  5. CLOPIDOGREL [Concomitant]
     Active Substance: CLOPIDOGREL BISULFATE
  6. PANTOPRAZOLE SODIUM [Concomitant]
     Active Substance: PANTOPRAZOLE SODIUM
  7. ROSUVASTATIN CALCIUM [Concomitant]
     Active Substance: ROSUVASTATIN CALCIUM
  8. FUROSEMIDE [Concomitant]
     Active Substance: FUROSEMIDE
  9. GABAPENTIN [Concomitant]
     Active Substance: GABAPENTIN
  10. METOLAZONE [Concomitant]
     Active Substance: METOLAZONE
  11. TAMOXIFEN [Concomitant]
     Active Substance: TAMOXIFEN
  12. OXYGEN [Concomitant]
     Active Substance: OXYGEN
     Dosage: 2 L
     Route: 045

REACTIONS (4)
  - Death [Fatal]
  - Large intestine polyp [Unknown]
  - Gait disturbance [Unknown]
  - Sleep disorder [Unknown]

NARRATIVE: CASE EVENT DATE: 20240101
